FAERS Safety Report 21321699 (Version 1)
Quarter: 2022Q3

REPORT INFORMATION
  Report Type: Spontaneous
  Country: PL (occurrence: PL)
  Receive Date: 20220912
  Receipt Date: 20220912
  Transmission Date: 20221027
  Serious: Yes (Death)
  Sender: FDA-Public Use
  Company Number: None

PATIENT
  Age: 64 Year
  Sex: Male

DRUGS (8)
  1. CARBOPLATIN [Suspect]
     Active Substance: CARBOPLATIN
     Indication: Malignant respiratory tract neoplasm
     Dosage: 463.47 MG (21 DAYS. THE DRUG WAS NOT USED IN THE PAST)
     Route: 065
     Dates: start: 20220707, end: 20220707
  2. PACLITAXEL [Suspect]
     Active Substance: PACLITAXEL
     Indication: Malignant respiratory tract neoplasm
     Dosage: 285.25 MG (21 DAYS. THE DRUG WAS NOT USED IN THE PAST)
     Route: 042
     Dates: start: 20220707, end: 20220707
  3. KEYTRUDA [Suspect]
     Active Substance: PEMBROLIZUMAB
     Indication: Malignant respiratory tract neoplasm
     Dosage: 200 MG (21 DAYS. THE DRUG WAS NOT USED IN THE PAST)
     Route: 042
     Dates: start: 20220707, end: 20220707
  4. ATORVASTATIN CALCIUM [Concomitant]
     Active Substance: ATORVASTATIN CALCIUM
     Indication: Product used for unknown indication
     Dosage: UNK (1X1. THE PATIENT USES THE DRUG CHRONICALLY)
     Route: 065
  5. LYRICA [Concomitant]
     Active Substance: PREGABALIN
     Indication: Product used for unknown indication
     Dosage: UNK (2X1. THE PATIENT USES THE DRUG CHRONICALLY)
     Route: 065
  6. METOPROLOL TARTRATE [Concomitant]
     Active Substance: METOPROLOL TARTRATE
     Indication: Product used for unknown indication
     Dosage: UNK (1X1. THE PATIENT USES THE DRUG CHRONICALLY)
     Route: 065
  7. TRAMADOL [Concomitant]
     Active Substance: TRAMADOL
     Indication: Product used for unknown indication
     Dosage: UNK (1X1. RELIEVER MEDICATION)
     Route: 065
  8. DIHYDROCODEINE BITARTRATE [Concomitant]
     Active Substance: DIHYDROCODEINE BITARTRATE
     Indication: Product used for unknown indication
     Dosage: UNK (2X1)
     Route: 065

REACTIONS (13)
  - Troponin increased [Fatal]
  - Inflammatory marker increased [Fatal]
  - Oxygen saturation decreased [Fatal]
  - Multiple organ dysfunction syndrome [Fatal]
  - Acidosis [Fatal]
  - General physical health deterioration [Fatal]
  - Renal failure [Fatal]
  - Chest pain [Fatal]
  - Febrile neutropenia [Fatal]
  - Dyspnoea [Fatal]
  - Abdominal pain [Fatal]
  - Neutropenia [Fatal]
  - Cardiac failure [Fatal]

NARRATIVE: CASE EVENT DATE: 20220718
